FAERS Safety Report 5031347-6 (Version None)
Quarter: 2006Q2

REPORT INFORMATION
  Report Type: 
  Country: None (occurrence: None)
  Receive Date: 20060615
  Receipt Date: 20060531
  Transmission Date: 20061013
  Serious: Yes (Hospitalization)
  Sender: FDA-Public Use
  Company Number: 2005-00523

PATIENT
  Age: 57 Year
  Sex: Female
  Weight: 78.3 kg

DRUGS (7)
  1. VELCADE [Suspect]
     Indication: MULTIPLE MYELOMA
     Dosage: 2.30 MG, INTRAVENOUS
     Route: 042
     Dates: start: 20050301, end: 20050304
  2. VENTOLIN [Concomitant]
  3. ADVAIR DISKUS 100/50 [Concomitant]
  4. LEVOTHYROXINE SODIUM [Concomitant]
  5. VELCADE [Suspect]
     Dates: start: 20050404
  6. VELCADE [Suspect]
  7. VELCADE [Suspect]

REACTIONS (10)
  - ANOREXIA [None]
  - ASTHENIA [None]
  - BURNING SENSATION [None]
  - CELLULITIS [None]
  - DEHYDRATION [None]
  - DIZZINESS [None]
  - DYSPNOEA [None]
  - DYSPNOEA EXERTIONAL [None]
  - HAEMOPHILUS INFECTION [None]
  - PLEURITIC PAIN [None]
